FAERS Safety Report 9059344 (Version 2)
Quarter: 2013Q1

REPORT INFORMATION
  Report Type: Spontaneous
  Country: US (occurrence: US)
  Receive Date: 20130211
  Receipt Date: 20130301
  Transmission Date: 20140127
  Serious: Yes (Other)
  Sender: FDA-Public Use
  Company Number: US-MEDICIS-2013P1001793

PATIENT
  Age: 31 Year
  Sex: Female

DRUGS (1)
  1. ZIANA GEL [Suspect]
     Indication: ACNE
     Route: 061
     Dates: start: 20130131, end: 20130131

REACTIONS (4)
  - Dry throat [Recovered/Resolved]
  - Pharyngeal oedema [Recovered/Resolved]
  - Dyspnoea [Recovered/Resolved]
  - Hypersensitivity [Recovered/Resolved]
